FAERS Safety Report 23115758 (Version 7)
Quarter: 2024Q2

REPORT INFORMATION
  Report Type: Report from Study
  Country: BR (occurrence: BR)
  Receive Date: 20231027
  Receipt Date: 20240529
  Transmission Date: 20240716
  Serious: Yes (Hospitalization, Other)
  Sender: FDA-Public Use
  Company Number: BR-JNJFOC-20231048875

PATIENT
  Age: 62 Year
  Sex: Female
  Weight: 60 kg

DRUGS (6)
  1. INFLIXIMAB [Suspect]
     Active Substance: INFLIXIMAB
     Indication: Crohn^s disease
     Dosage: TREATMENT START DATE ALSO REPORTED AS (13-JUL-2023);
     Route: 041
     Dates: start: 2022, end: 20230718
  2. REMICADE [Suspect]
     Active Substance: INFLIXIMAB
     Indication: Crohn^s disease
     Dosage: LAST DRUG APPLICATION WAS IN JUN-2023?FIRST DRUG APPLICATION ALSO REPORTED AS (SEP-2021)
     Route: 041
     Dates: start: 20230523, end: 20230610
  3. REMICADE [Suspect]
     Active Substance: INFLIXIMAB
     Route: 041
     Dates: start: 20230524
  4. GOLIMUMAB [Concomitant]
     Active Substance: GOLIMUMAB
     Route: 065
  5. USTEKINUMAB [Concomitant]
     Active Substance: USTEKINUMAB
     Indication: Crohn^s disease
     Route: 042
  6. USTEKINUMAB [Concomitant]
     Active Substance: USTEKINUMAB
     Indication: Memory impairment
     Route: 058

REACTIONS (8)
  - Lupus-like syndrome [Recovered/Resolved]
  - Vomiting [Recovering/Resolving]
  - Crohn^s disease [Not Recovered/Not Resolved]
  - Paraplegia [Not Recovered/Not Resolved]
  - Illness [Recovering/Resolving]
  - Rheumatic disorder [Unknown]
  - Amnesia [Unknown]
  - Drug ineffective [Unknown]

NARRATIVE: CASE EVENT DATE: 20230101
